FAERS Safety Report 19061615 (Version 1)
Quarter: 2021Q1

REPORT INFORMATION
  Report Type: Spontaneous
  Country: CN (occurrence: CN)
  Receive Date: 20210325
  Receipt Date: 20210325
  Transmission Date: 20210420
  Serious: Yes (Other)
  Sender: FDA-Public Use
  Company Number: CN-INCYTE CORPORATION-2021IN002587

PATIENT

DRUGS (2)
  1. TESTOSTERONE UNDECANOATE. [Concomitant]
     Active Substance: TESTOSTERONE UNDECANOATE
     Indication: PRODUCT USED FOR UNKNOWN INDICATION
     Dosage: UNK
     Route: 065
  2. JAKAVI [Suspect]
     Active Substance: RUXOLITINIB
     Indication: PRODUCT USED FOR UNKNOWN INDICATION
     Dosage: UNK
     Route: 048

REACTIONS (6)
  - Anaemia [Unknown]
  - Cardiac failure [Unknown]
  - Atrial fibrillation [Unknown]
  - Splenomegaly [Unknown]
  - Palpitations [Unknown]
  - Dyspnoea [Unknown]
